FAERS Safety Report 9515351 (Version 2)
Quarter: 2015Q2

REPORT INFORMATION
  Report Type: Spontaneous
  Country: US (occurrence: US)
  Receive Date: 20130911
  Receipt Date: 20150604
  Transmission Date: 20150821
  Serious: Yes (Hospitalization)
  Sender: FDA-Public Use
  Company Number: US-BAYER-2013-106579

PATIENT
  Age: 38 Year
  Sex: Female

DRUGS (9)
  1. GIANVI [Suspect]
     Active Substance: DROSPIRENONE\ETHINYL ESTRADIOL
     Dosage: UNK
     Dates: start: 20080923, end: 20090102
  2. OCELLA [Suspect]
     Active Substance: DROSPIRENONE\ETHINYL ESTRADIOL
     Dosage: UNK
     Dates: start: 20080923, end: 20090102
  3. SIROLIMUS. [Concomitant]
     Active Substance: SIROLIMUS
     Dosage: 3 MG PER SQ CM BID
     Route: 048
     Dates: start: 20090103
  4. PREDNISONE. [Concomitant]
     Active Substance: PREDNISONE
     Dosage: 10 MG AND 5 MG ALTERNATE DAYS
     Route: 048
     Dates: start: 20090103
  5. YAZ [Suspect]
     Active Substance: DROSPIRENONE\ETHINYL ESTRADIOL
     Dosage: UNK
     Dates: start: 20080923, end: 20090102
  6. NORVASC [Concomitant]
     Active Substance: AMLODIPINE BESYLATE
     Dosage: 5 MG,DAILY
     Route: 048
     Dates: start: 20090103
  7. METOPROLOL [Concomitant]
     Active Substance: METOPROLOL
     Dosage: 12.5 MG, BID
  8. YASMIN [Suspect]
     Active Substance: DROSPIRENONE\ETHINYL ESTRADIOL
     Dosage: UNK
     Dates: start: 20080923, end: 20090102
  9. MYCOPHENOLIC ACID. [Concomitant]
     Active Substance: MYCOPHENOLIC ACID
     Dosage: 720 MG, BID
     Route: 048
     Dates: start: 20090103

REACTIONS (5)
  - Cerebral infarction [Recovering/Resolving]
  - Injury [Recovering/Resolving]
  - Pain [Recovering/Resolving]
  - Emotional distress [None]
  - Ischaemic stroke [Recovering/Resolving]

NARRATIVE: CASE EVENT DATE: 20090102
